FAERS Safety Report 18629250 (Version 1)
Quarter: 2020Q4

REPORT INFORMATION
  Report Type: Spontaneous
  Country: US (occurrence: US)
  Receive Date: 20201217
  Receipt Date: 20201217
  Transmission Date: 20210114
  Serious: Yes (Other)
  Sender: FDA-Public Use
  Company Number: US-PURDUE-USA-2020-0171871

PATIENT
  Sex: Female

DRUGS (11)
  1. OXYFAST [Suspect]
     Active Substance: OXYCODONE
     Indication: FOETAL EXPOSURE DURING PREGNANCY
     Dosage: UNKNOWN DOSE
     Route: 064
  2. OXYCODONE HCL TABLETS (RHODES 91-490) [Suspect]
     Active Substance: OXYCODONE HYDROCHLORIDE
     Indication: FOETAL EXPOSURE DURING PREGNANCY
     Dosage: UNKNOWN DOSE
     Route: 064
  3. TRAMADOL. [Suspect]
     Active Substance: TRAMADOL
     Indication: FOETAL EXPOSURE DURING PREGNANCY
     Dosage: UNKNOWN DOSE
     Route: 064
  4. DILAUDID [Suspect]
     Active Substance: HYDROMORPHONE HYDROCHLORIDE
     Indication: FOETAL EXPOSURE DURING PREGNANCY
     Dosage: UNKNOWN DOSE
     Route: 064
  5. HYDROCODONE BITARTRATE AND ACETAMINOPHEN [Suspect]
     Active Substance: ACETAMINOPHEN\HYDROCODONE BITARTRATE
     Indication: FOETAL EXPOSURE DURING PREGNANCY
     Dosage: UNKNOWN DOSE
     Route: 064
  6. ROXICODONE [Suspect]
     Active Substance: OXYCODONE HYDROCHLORIDE
     Indication: FOETAL EXPOSURE DURING PREGNANCY
     Dosage: UNKNOWN DOSE
     Route: 064
  7. METHADONE [Suspect]
     Active Substance: METHADONE HYDROCHLORIDE
     Indication: FOETAL EXPOSURE DURING PREGNANCY
     Dosage: UNKNOWN DOSE
     Route: 064
  8. MORPHINE SULFATE ORAL SOLUTION [Suspect]
     Active Substance: MORPHINE SULFATE
     Indication: FOETAL EXPOSURE DURING PREGNANCY
     Dosage: UNKNOWN DOSE
     Route: 064
  9. BUPRENORPHINE TRANSDERMAL PATCH (SIMILAR TO NDA 21-306) [Suspect]
     Active Substance: BUPRENORPHINE
     Indication: FOETAL EXPOSURE DURING PREGNANCY
     Dosage: UNKNOWN DOSE
     Route: 064
  10. HYDROMORPHONE TABLETS [Suspect]
     Active Substance: HYDROMORPHONE
     Indication: FOETAL EXPOSURE DURING PREGNANCY
     Dosage: UNKNOWN DOSE
     Route: 064
  11. OXYCODONE/ ACETAMINOPHEN TABLETS [Suspect]
     Active Substance: ACETAMINOPHEN\OXYCODONE HYDROCHLORIDE
     Indication: FOETAL EXPOSURE DURING PREGNANCY
     Dosage: UNKNOWN DOSE
     Route: 064

REACTIONS (8)
  - Foetal exposure during pregnancy [Unknown]
  - Visual impairment [Not Recovered/Not Resolved]
  - Anxiety [Unknown]
  - Drug withdrawal syndrome neonatal [Unknown]
  - Trichotillomania [Not Recovered/Not Resolved]
  - Pain [Not Recovered/Not Resolved]
  - Nystagmus [Not Recovered/Not Resolved]
  - Emotional distress [Unknown]
